FAERS Safety Report 21762220 (Version 7)
Quarter: 2023Q2

REPORT INFORMATION
  Report Type: Other
  Country: PL (occurrence: None)
  Receive Date: 20221221
  Receipt Date: 20230525
  Transmission Date: 20230721
  Serious: Yes (Death, Hospitalization)
  Sender: FDA-Public Use
  Company Number: PL-ROCHE-3245677

PATIENT
  Age: 41 Year
  Sex: Female
  Weight: 73 kg

DRUGS (7)
  1. OCRELIZUMAB [Suspect]
     Active Substance: OCRELIZUMAB
     Indication: Relapsing-remitting multiple sclerosis
     Dosage: START DATE OF MOST RECENT DOSE OF STUDY DRUG PRIOR TO AE :31/AUG/2022?START DATE OF MOST RECENT DOSE
     Route: 042
     Dates: start: 20200306, end: 20200306
  2. OCRELIZUMAB [Suspect]
     Active Substance: OCRELIZUMAB
     Route: 042
     Dates: start: 20200319, end: 20200319
  3. OCRELIZUMAB [Suspect]
     Active Substance: OCRELIZUMAB
     Route: 042
     Dates: start: 20200902, end: 20200902
  4. OCRELIZUMAB [Suspect]
     Active Substance: OCRELIZUMAB
     Route: 042
     Dates: start: 20210302, end: 20210302
  5. OCRELIZUMAB [Suspect]
     Active Substance: OCRELIZUMAB
     Route: 042
     Dates: start: 20210903, end: 20210903
  6. OCRELIZUMAB [Suspect]
     Active Substance: OCRELIZUMAB
     Route: 042
     Dates: start: 20220303, end: 20220303
  7. OCRELIZUMAB [Suspect]
     Active Substance: OCRELIZUMAB
     Route: 042
     Dates: start: 20220831, end: 20220831

REACTIONS (8)
  - Pneumonia influenzal [Fatal]
  - Septic shock [Fatal]
  - Acute kidney injury [Fatal]
  - Acute respiratory failure [Fatal]
  - Cardiac arrest [Fatal]
  - Neutropenia [Fatal]
  - Lymphopenia [Fatal]
  - Circulatory collapse [Fatal]

NARRATIVE: CASE EVENT DATE: 20221216
